FAERS Safety Report 4434841-1 (Version None)
Quarter: 2004Q3

REPORT INFORMATION
  Report Type: 
  Country: None (occurrence: None)
  Receive Date: 20040827
  Receipt Date: 20040628
  Transmission Date: 20050211
  Serious: Yes (Other)
  Sender: FDA-Public Use
  Company Number: PHBS2004JP08596

PATIENT
  Age: 6 Year
  Sex: Female

DRUGS (3)
  1. NEORAL [Suspect]
     Indication: NEPHROTIC SYNDROME
     Route: 048
  2. SAIREI-TO [Concomitant]
     Indication: NEPHROTIC SYNDROME
     Route: 048
  3. STEROIDS NOS [Concomitant]
     Indication: NEPHROTIC SYNDROME

REACTIONS (1)
  - DIPLOPIA [None]
